FAERS Safety Report 6390963-X (Version None)
Quarter: 2009Q4

REPORT INFORMATION
  Report Type: 
  Country: None (occurrence: None)
  Receive Date: 20091001
  Receipt Date: 20090831
  Transmission Date: 20100525
  Serious: Yes (Other)
  Sender: FDA-Public Use
  Company Number: 208193USA

PATIENT
  Age: 38 Year
  Sex: Female

DRUGS (1)
  1. TOPIRAMATE [Suspect]
     Indication: MIGRAINE
     Dosage: 50 MG (25 MG, 2  IN 1 D),ORAL
     Route: 048
     Dates: start: 20090701, end: 20090801

REACTIONS (4)
  - CRYING [None]
  - DEPRESSION [None]
  - INDIFFERENCE [None]
  - SUICIDAL IDEATION [None]
